FAERS Safety Report 11170288 (Version 1)
Quarter: 2015Q2

REPORT INFORMATION
  Report Type: Spontaneous
  Country: FR (occurrence: FR)
  Receive Date: 20150608
  Receipt Date: 20150608
  Transmission Date: 20150821
  Serious: Yes (Hospitalization)
  Sender: FDA-Public Use
  Company Number: FR-ACCORD-031249

PATIENT
  Age: 79 Year
  Sex: Female

DRUGS (4)
  1. LYRICA [Concomitant]
     Active Substance: PREGABALIN
     Dates: start: 201501
  2. FLUOROURACIL ACCORD [Suspect]
     Active Substance: FLUOROURACIL
     Indication: COLON CANCER
     Dosage: FOLFOX, 4 MG/M? EVERY 2 WEEKS
     Route: 042
     Dates: start: 20140715, end: 20150105
  3. OXALIPLATIN ACCORD [Suspect]
     Active Substance: OXALIPLATIN
     Indication: COLON CANCER
     Dosage: FOLFOX, 4 MG/M? EVERY 2 WEEKS
     Route: 042
     Dates: start: 20140715, end: 20150105
  4. FOLINIC ACID [Concomitant]
     Active Substance: LEUCOVORIN
     Indication: COLON CANCER
     Dosage: FOLFOX, 4 MG/M? EVERY 2 WEEKS
     Dates: start: 201407, end: 201501

REACTIONS (3)
  - Alveolitis [Not Recovered/Not Resolved]
  - Interstitial lung disease [Not Recovered/Not Resolved]
  - Bronchial disorder [Not Recovered/Not Resolved]

NARRATIVE: CASE EVENT DATE: 201503
